FAERS Safety Report 24737821 (Version 1)
Quarter: 2024Q4

REPORT INFORMATION
  Report Type: Spontaneous
  Country: US (occurrence: None)
  Receive Date: 20241216
  Receipt Date: 20241216
  Transmission Date: 20250115
  Serious: Yes (Other)
  Sender: Public
  Company Number: None

PATIENT
  Sex: Male

DRUGS (6)
  1. IMATINIB MESYLATE [Suspect]
     Active Substance: IMATINIB MESYLATE
     Indication: Gastrointestinal stromal tumour
     Dosage: FREQUENCY : DAILY;?
     Route: 048
     Dates: start: 20241123
  2. MULTIVITAMIN TAB ADULTS [Concomitant]
  3. PANTOPRAZOLE TAB 40MG [Concomitant]
  4. PAROXETINE TAB 10MG [Concomitant]
  5. PROPRANOLOL TAB 10MG [Concomitant]
  6. TRAMADOLHCLTAB50MG [Concomitant]

REACTIONS (1)
  - Surgery [None]
